FAERS Safety Report 13654663 (Version 2)
Quarter: 2017Q2

REPORT INFORMATION
  Report Type: Report from Study
  Country: US (occurrence: US)
  Receive Date: 20170615
  Receipt Date: 20170615
  Transmission Date: 20170830
  Serious: Yes (Death)
  Sender: FDA-Public Use
  Company Number: US-TORRENT-00002851

PATIENT
  Age: 54 Year
  Sex: Female

DRUGS (6)
  1. CARBAMAZEPINE. [Suspect]
     Active Substance: CARBAMAZEPINE
  2. GABAPENTIN. [Suspect]
     Active Substance: GABAPENTIN
  3. NORTRIPTYLINE [Suspect]
     Active Substance: NORTRIPTYLINE
  4. MIRTAZAPINE. [Suspect]
     Active Substance: MIRTAZAPINE
  5. DIAZEPAM. [Suspect]
     Active Substance: DIAZEPAM
  6. LORAZEPAM. [Suspect]
     Active Substance: LORAZEPAM

REACTIONS (3)
  - Completed suicide [Fatal]
  - Cardio-respiratory arrest [Fatal]
  - Toxicity to various agents [Fatal]
